FAERS Safety Report 6739665-8 (Version None)
Quarter: 2010Q2

REPORT INFORMATION
  Report Type: 
  Country: None (occurrence: None)
  Receive Date: 20100525
  Receipt Date: 20100517
  Transmission Date: 20101027
  Serious: Yes (Hospitalization)
  Sender: FDA-Public Use
  Company Number: CA-ROCHE-703233

PATIENT
  Age: 81 Year
  Sex: Female

DRUGS (3)
  1. AVASTIN [Suspect]
     Route: 031
  2. RALOXIFENE HCL [Concomitant]
  3. RAMIPRIL [Concomitant]

REACTIONS (1)
  - GRAND MAL CONVULSION [None]
